FAERS Safety Report 4706207-8 (Version None)
Quarter: 2005Q2

REPORT INFORMATION
  Report Type: 
  Country: None (occurrence: None)
  Receive Date: 20050627
  Receipt Date: 20050317
  Transmission Date: 20051028
  Serious: No
  Sender: FDA-Public Use
  Company Number: IND-AE-05-SAN-013

PATIENT
  Age: 49 Year
  Sex: Female
  Weight: 104.3273 kg

DRUGS (7)
  1. SANCTURA [Suspect]
     Indication: HYPERTONIC BLADDER
     Dosage: 20MG-BID-ORAL
     Route: 048
     Dates: start: 20050314, end: 20050316
  2. SANCTURA [Suspect]
     Indication: HYPERTONIC BLADDER
     Dosage: 20MG-QD-ORAL
     Route: 048
     Dates: start: 20050316
  3. NORVASC [Concomitant]
  4. COZAAR [Concomitant]
  5. ZOLOFT [Concomitant]
  6. NEURONTIN [Concomitant]
  7. ALESSE [Concomitant]

REACTIONS (2)
  - FATIGUE [None]
  - HEADACHE [None]
